FAERS Safety Report 4718059-0 (Version None)
Quarter: 2005Q3

REPORT INFORMATION
  Report Type: 
  Country: None (occurrence: None)
  Receive Date: 20050718
  Receipt Date: 20050718
  Transmission Date: 20060218
  Serious: Yes (Life-Threatening, Hospitalization)
  Sender: FDA-Public Use
  Company Number: None

PATIENT
  Sex: Female
  Weight: 97.5234 kg

DRUGS (1)
  1. LAMISIL [Suspect]
     Indication: ONYCHOMYCOSIS
     Dates: start: 20050317, end: 20050417

REACTIONS (6)
  - AUTOIMMUNE HEPATITIS [None]
  - HEPATIC FAILURE [None]
  - LIVER TRANSPLANT [None]
  - NAUSEA [None]
  - RENAL FAILURE [None]
  - RETCHING [None]
